FAERS Safety Report 14073021 (Version 1)
Quarter: 2017Q4

REPORT INFORMATION
  Report Type: Spontaneous
  Country: TW (occurrence: TW)
  Receive Date: 20171011
  Receipt Date: 20171011
  Transmission Date: 20180321
  Serious: Yes (Death, Hospitalization, Other)
  Sender: FDA-Public Use
  Company Number: TW-ACTELION-A-CH2017-150847

PATIENT
  Age: 58 Year
  Sex: Female

DRUGS (4)
  1. EURICON [Concomitant]
     Indication: HYPERURICAEMIA
     Dosage: 50 MG, QD
     Route: 048
     Dates: end: 20071001
  2. OPSUMIT [Suspect]
     Active Substance: MACITENTAN
     Indication: PULMONARY ARTERIAL HYPERTENSION
     Dosage: 10 MG, QD
     Route: 048
     Dates: start: 20150624, end: 20171001
  3. SECORIN [Concomitant]
     Indication: ANXIETY
     Dosage: 10 MG, BID
     Route: 048
     Dates: end: 20171001
  4. DIOVAN [Concomitant]
     Active Substance: VALSARTAN
     Indication: HYPERTENSION
     Dosage: 160 MG, QD
     Route: 048
     Dates: end: 20171001

REACTIONS (8)
  - Abdominal distension [Unknown]
  - Asthenia [Unknown]
  - Multiple organ dysfunction syndrome [Fatal]
  - Lethargy [Unknown]
  - Loss of consciousness [Unknown]
  - Abdominal cavity drainage [Unknown]
  - Ascites [Unknown]
  - Abdominal pain [Unknown]

NARRATIVE: CASE EVENT DATE: 201703
